FAERS Safety Report 6417729-6 (Version None)
Quarter: 2009Q4

REPORT INFORMATION
  Report Type: 
  Country: None (occurrence: None)
  Receive Date: 20091028
  Receipt Date: 20091019
  Transmission Date: 20100525
  Serious: Yes (Other)
  Sender: FDA-Public Use
  Company Number: US-BAXTER-2009BH015314

PATIENT
  Age: 16 Year
  Sex: Male

DRUGS (9)
  1. GAMMAGARD LIQUID [Suspect]
     Indication: IMMUNODEFICIENCY COMMON VARIABLE
     Route: 042
     Dates: start: 20090915, end: 20090917
  2. LORTAB [Concomitant]
  3. ESOMEPRAZOLE MAGNESIUM [Concomitant]
  4. ULTRAM [Concomitant]
  5. LIDOCAINE [Concomitant]
     Indication: BACK PAIN
  6. XYZAL [Concomitant]
  7. ADVAIR DISKUS 100/50 [Concomitant]
  8. EYE DROPS [Concomitant]
  9. NEOMAX [Concomitant]

REACTIONS (6)
  - DIZZINESS [None]
  - DYSPNOEA [None]
  - HEADACHE [None]
  - SKIN DISCOLOURATION [None]
  - THROAT TIGHTNESS [None]
  - VOMITING [None]
